FAERS Safety Report 4431296-8 (Version None)
Quarter: 2004Q3

REPORT INFORMATION
  Report Type: 
  Country: None (occurrence: None)
  Receive Date: 20040823
  Receipt Date: 20040823
  Transmission Date: 20050211
  Serious: Yes (Hospitalization)
  Sender: FDA-Public Use
  Company Number: None

PATIENT
  Age: 73 Year
  Sex: Female
  Weight: 102.27 kg

DRUGS (2)
  1. CEFTRIAXONE SODIUM [Suspect]
     Indication: URINARY TRACT INFECTION
     Dosage: 1 G OTO IV
     Route: 042
     Dates: start: 20040619, end: 20040619
  2. LANSOPRAZOLE [Concomitant]

REACTIONS (1)
  - ANAPHYLACTIC REACTION [None]
